FAERS Safety Report 8138749-X (Version None)
Quarter: 2012Q1

REPORT INFORMATION
  Report Type: 
  Country: None (occurrence: None)
  Receive Date: 20120213
  Receipt Date: 20120130
  Transmission Date: 20120608
  Serious: Yes (Hospitalization)
  Sender: FDA-Public Use
  Company Number: 2012CP000005

PATIENT
  Age: 77 Year
  Sex: Female

DRUGS (14)
  1. ACETAMINOPHEN [Suspect]
     Dosage: 1 GRAM, 1 DAY,
     Dates: start: 20111110, end: 20111116
  2. FUROSEMIDE [Concomitant]
  3. ZOLOFT [Suspect]
     Indication: DEPRESSION
     Dosage: 50 MG, 1 DAY, PO
     Route: 048
     Dates: start: 20111110, end: 20111116
  4. TRAMADOL HYDROHLORIDE [Suspect]
     Dosage: 100 MG;2/1 DAY, PO
     Route: 048
     Dates: start: 20111110, end: 20111116
  5. LOXEN [Concomitant]
  6. FLUINDIONE [Concomitant]
  7. TRAMADOL HCL [Concomitant]
  8. PERINDOPRIL ERBUMINE [Suspect]
     Indication: HYPERTENSION
     Dosage: 5 MG, 1 DAY, PO
     Route: 048
     Dates: start: 20111110, end: 20111116
  9. PERINDOPRIL [Concomitant]
  10. LOVENOX [Suspect]
     Indication: THROMBOSIS PROPHYLAXIS
     Dosage: .7 ML; 2/1 DAY, SC
     Route: 058
  11. RISPERDAL [Suspect]
     Dosage: 1 MG, 1 DAY, PO
     Route: 048
     Dates: start: 20111110, end: 20111116
  12. VITAMIN TAB [Concomitant]
  13. ACETYLLEUCINE [Concomitant]
  14. SERTRALINE HYDROCHLORIDE [Concomitant]

REACTIONS (11)
  - METABOLIC ACIDOSIS [None]
  - ALTERED STATE OF CONSCIOUSNESS [None]
  - ABDOMINAL PAIN [None]
  - HAEMOGLOBIN DECREASED [None]
  - RETROPERITONEAL HAEMATOMA [None]
  - HAEMATOMA [None]
  - SHOCK HAEMORRHAGIC [None]
  - ATRIAL FIBRILLATION [None]
  - RENAL FAILURE ACUTE [None]
  - BILIARY CYST [None]
  - TACHYARRHYTHMIA [None]
